FAERS Safety Report 9702176 (Version 1)
Quarter: 2013Q4

REPORT INFORMATION
  Report Type: Spontaneous
  Country: ES (occurrence: ES)
  Receive Date: 20131121
  Receipt Date: 20131121
  Transmission Date: 20140711
  Serious: Yes (Other)
  Sender: FDA-Public Use
  Company Number: ES-B.I. PHARMACEUTICALS,INC./RIDGEFIELD-2013-BI-37696ES

PATIENT
  Age: 75 Year
  Sex: Male

DRUGS (1)
  1. ATROVENT [Suspect]
     Indication: RESPIRATORY FAILURE
     Dosage: 1500 MCG
     Route: 055
     Dates: start: 20131026, end: 20131026

REACTIONS (2)
  - Discomfort [Recovered/Resolved]
  - Respiratory distress [Recovered/Resolved]
